FAERS Safety Report 16565082 (Version 1)
Quarter: 2019Q3

REPORT INFORMATION
  Report Type: Spontaneous
  Country: US (occurrence: US)
  Receive Date: 20190711
  Receipt Date: 20190711
  Transmission Date: 20191004
  Serious: Yes (Life-Threatening, Disabling)
  Sender: FDA-Public Use
  Company Number: None

PATIENT
  Age: 40 Year
  Sex: Male
  Weight: 72 kg

DRUGS (1)
  1. EMBEDA [Suspect]
     Active Substance: MORPHINE SULFATE\NALTREXONE HYDROCHLORIDE
     Indication: PAIN
     Dosage: ?          QUANTITY:1 CAPSULE(S);?
     Route: 048

REACTIONS (12)
  - Quality of life decreased [None]
  - Insurance issue [None]
  - Fatigue [None]
  - Product complaint [None]
  - Drug abuse [None]
  - Abdominal pain upper [None]
  - Drug ineffective [None]
  - Suicidal ideation [None]
  - Depression [None]
  - Treatment failure [None]
  - Product measured potency issue [None]
  - Prescribed underdose [None]

NARRATIVE: CASE EVENT DATE: 20190701
